FAERS Safety Report 20379989 (Version 1)
Quarter: 2022Q1

REPORT INFORMATION
  Report Type: Spontaneous
  Country: US (occurrence: US)
  Receive Date: 20220126
  Receipt Date: 20220126
  Transmission Date: 20220423
  Serious: Yes (Other)
  Sender: FDA-Public Use
  Company Number: US-ALLERGAN-2202631US

PATIENT

DRUGS (2)
  1. LINZESS [Suspect]
     Active Substance: LINACLOTIDE
     Indication: Product used for unknown indication
     Dosage: UNK
  2. BRAFTOVI [Suspect]
     Active Substance: ENCORAFENIB
     Indication: Product used for unknown indication
     Dosage: 75 MG

REACTIONS (8)
  - Fatigue [Unknown]
  - Eye pruritus [Unknown]
  - Pruritus [Unknown]
  - Somnolence [Unknown]
  - Taste disorder [Unknown]
  - Dyspnoea [Unknown]
  - Constipation [Recovering/Resolving]
  - Diarrhoea [Unknown]
